FAERS Safety Report 4806080-3 (Version None)
Quarter: 2005Q4

REPORT INFORMATION
  Report Type: 
  Country: None (occurrence: None)
  Receive Date: 20051021
  Receipt Date: 20051003
  Transmission Date: 20060501
  Serious: Yes (Other)
  Sender: FDA-Public Use
  Company Number: JP-ROCHE-419636

PATIENT
  Age: 77 Year
  Sex: Male

DRUGS (8)
  1. NICARDIPINE HCL [Suspect]
     Indication: DRUG USE FOR UNKNOWN INDICATION
     Route: 041
  2. NITROGLYCERIN [Suspect]
     Indication: DRUG USE FOR UNKNOWN INDICATION
     Route: 041
  3. FENTANYL [Concomitant]
     Route: 042
  4. PROPOFOL [Concomitant]
  5. ROPIVACAINE [Concomitant]
     Route: 008
  6. MEPIVACAINE HCL [Concomitant]
     Route: 008
  7. SEVOFLURANE [Concomitant]
     Dosage: ROUTE: IH.
  8. NITROUS OXIDE W/ OXYGEN [Concomitant]
     Dosage: ROUTE: IH.

REACTIONS (7)
  - BLOOD PRESSURE SYSTOLIC DECREASED [None]
  - HAEMODIALYSIS [None]
  - PARAGANGLION NEOPLASM [None]
  - PHAEOCHROMOCYTOMA [None]
  - PROCEDURAL HYPERTENSION [None]
  - RENAL FAILURE ACUTE [None]
  - THERAPY NON-RESPONDER [None]
